FAERS Safety Report 17458218 (Version 1)
Quarter: 2020Q1

REPORT INFORMATION
  Report Type: Spontaneous
  Country: US (occurrence: US)
  Receive Date: 20200225
  Receipt Date: 20200225
  Transmission Date: 20200409
  Serious: No
  Sender: FDA-Public Use
  Company Number: US-AMGEN-USASP2020029377

PATIENT
  Age: 57 Year
  Sex: Female

DRUGS (4)
  1. XGEVA [Suspect]
     Active Substance: DENOSUMAB
     Indication: BREAST CANCER
     Dosage: 120 MILLIGRAM, Q4WK
     Route: 065
     Dates: start: 201907
  2. PERJETA [Concomitant]
     Active Substance: PERTUZUMAB
     Indication: BREAST CANCER
     Dosage: 840 MILLIGRAM
     Dates: start: 201907
  3. PERJETA [Concomitant]
     Active Substance: PERTUZUMAB
     Dosage: 420 UNK
     Dates: start: 201907
  4. HERCEPTIN [Concomitant]
     Active Substance: TRASTUZUMAB
     Indication: BREAST CANCER
     Dosage: 6 MG PER KG EVERY 21 WEEKS
     Dates: start: 201907

REACTIONS (1)
  - Tooth extraction [Unknown]
